FAERS Safety Report 7181177-4 (Version None)
Quarter: 2010Q4

REPORT INFORMATION
  Report Type: 
  Country: None (occurrence: None)
  Receive Date: 20101221
  Receipt Date: 20101210
  Transmission Date: 20110411
  Serious: Yes (Hospitalization, Other)
  Sender: FDA-Public Use
  Company Number: NO-PFIZER INC-2010170131

PATIENT
  Sex: Male
  Weight: 75 kg

DRUGS (3)
  1. SALAZOPYRIN [Suspect]
     Indication: COLITIS ULCERATIVE
     Dosage: 1 G, 3X/DAY
     Dates: start: 20100811, end: 20100924
  2. IMUREL [Suspect]
     Indication: COLITIS ULCERATIVE
     Dosage: 100 MG, 2X/DAY
     Dates: start: 20100826, end: 20100924
  3. PREDNISOLONE [Concomitant]
     Dosage: UNK
     Dates: start: 20100415

REACTIONS (2)
  - HEPATIC ENZYME INCREASED [None]
  - LIVER INJURY [None]
